FAERS Safety Report 19513026 (Version 1)
Quarter: 2021Q3

REPORT INFORMATION
  Report Type: Spontaneous
  Country: US (occurrence: US)
  Receive Date: 20210709
  Receipt Date: 20210709
  Transmission Date: 20211014
  Serious: Yes (Hospitalization)
  Sender: FDA-Public Use
  Company Number: US-MYLANLABS-2021M1040338

PATIENT
  Age: 39 Year
  Sex: Male

DRUGS (5)
  1. FOSCARNET [Suspect]
     Active Substance: FOSCARNET
     Indication: NECROTISING HERPETIC RETINOPATHY
     Dosage: 2.4MG IN 0.1ML
  2. ATROPINE. [Concomitant]
     Active Substance: ATROPINE
     Indication: RETINITIS
     Route: 047
  3. ACICLOVIR [Suspect]
     Active Substance: ACYCLOVIR
     Indication: NECROTISING HERPETIC RETINOPATHY
     Dosage: 15 MILLIGRAM/KILOGRAM, Q8H,EVERY 8 HOURS
     Route: 042
  4. ACICLOVIR [Suspect]
     Active Substance: ACYCLOVIR
     Dosage: UNK, DOSE DECREASED
     Route: 042
  5. VALACICLOVIR [Suspect]
     Active Substance: VALACYCLOVIR HYDROCHLORIDE
     Indication: NECROTISING HERPETIC RETINOPATHY
     Dosage: 2 GRAM, QID,4 TIMES DAILY
     Route: 048

REACTIONS (2)
  - Drug ineffective [Unknown]
  - Acute kidney injury [Unknown]
